FAERS Safety Report 8779240 (Version 5)
Quarter: 2013Q2

REPORT INFORMATION
  Report Type: Spontaneous
  Country: US (occurrence: US)
  Receive Date: 20120912
  Receipt Date: 20130510
  Transmission Date: 20140414
  Serious: No
  Sender: FDA-Public Use
  Company Number: US-009507513-1209USA003579

PATIENT
  Age: 13 Year
  Sex: Female

DRUGS (1)
  1. IMPLANON [Suspect]
     Indication: CONTRACEPTION
     Dosage: UNK MG, UNK
     Route: 059
     Dates: start: 20110323

REACTIONS (2)
  - Limb injury [Unknown]
  - Device kink [Unknown]
